FAERS Safety Report 4295023-X (Version None)
Quarter: 2004Q1

REPORT INFORMATION
  Report Type: 
  Country: None (occurrence: None)
  Receive Date: 20040211
  Receipt Date: 20040130
  Transmission Date: 20041129
  Serious: Yes (Hospitalization)
  Sender: FDA-Public Use
  Company Number: 04P-056-0249160-00

PATIENT
  Age: 42 Year
  Sex: Female

DRUGS (4)
  1. TRICOR [Suspect]
     Indication: HYPERCHOLESTEROLAEMIA
     Dosage: 67 MG, 1 IN 1 D, ORAL
     Route: 048
     Dates: start: 20030901, end: 20031212
  2. BEROCCA [Suspect]
     Dates: start: 20031101, end: 20031212
  3. CELECOXIB [Suspect]
     Dates: start: 20031212, end: 20031212
  4. GLICLAZIDE [Suspect]
     Dates: start: 20030901, end: 20031212

REACTIONS (4)
  - DERMATITIS BULLOUS [None]
  - DERMATITIS EXFOLIATIVE [None]
  - ERYTHEMA [None]
  - PRURITUS [None]
